FAERS Safety Report 25928530 (Version 2)
Quarter: 2025Q4

REPORT INFORMATION
  Report Type: Spontaneous
  Country: US (occurrence: US)
  Receive Date: 20251016
  Receipt Date: 20251030
  Transmission Date: 20260118
  Serious: No
  Sender: ROCHE
  Company Number: US-ROCHE-10000407214

PATIENT
  Age: 57 Year
  Sex: Female
  Weight: 70.31 kg

DRUGS (6)
  1. XOLAIR [Suspect]
     Active Substance: OMALIZUMAB
     Indication: Nasal polyps
     Route: 058
     Dates: start: 202201
  2. XOLAIR [Suspect]
     Active Substance: OMALIZUMAB
     Indication: Asthma
     Dosage: STRENGTH: 75MG/0.5ML
     Route: 058
     Dates: start: 202409, end: 20251020
  3. XOLAIR [Suspect]
     Active Substance: OMALIZUMAB
     Dosage: TAKES TWO 150MG AUTOINJECTORS ONCE A MONTH FOR A TOTAL OF 300MG
     Route: 058
     Dates: start: 20251020
  4. XHANCE [Suspect]
     Active Substance: FLUTICASONE PROPIONATE
     Indication: Nasal polyps
     Dosage: ONE SPRAY IN EACH NOSTRIL TWICE DAILY
     Route: 045
     Dates: start: 202208
  5. PREDNISONE [Suspect]
     Active Substance: PREDNISONE
     Indication: Nasal polyps
     Route: 065
     Dates: start: 202207
  6. TRELEGY ELLIPTA [Concomitant]
     Active Substance: FLUTICASONE FUROATE\UMECLIDINIUM BROMIDE\VILANTEROL TRIFENATATE
     Dates: start: 2025

REACTIONS (6)
  - Device leakage [Unknown]
  - Product dose omission issue [Unknown]
  - Device defective [Unknown]
  - Weight fluctuation [Not Recovered/Not Resolved]
  - Drug ineffective [Unknown]
  - Device difficult to use [Unknown]

NARRATIVE: CASE EVENT DATE: 20251006
